FAERS Safety Report 5263893-4 (Version None)
Quarter: 2007Q1

REPORT INFORMATION
  Report Type: 
  Country: None (occurrence: None)
  Receive Date: 20070313
  Receipt Date: 20070308
  Transmission Date: 20070707
  Serious: Yes (Other)
  Sender: FDA-Public Use
  Company Number: US-BRISTOL-MYERS SQUIBB COMPANY-13709829

PATIENT
  Age: 41 Year
  Sex: Female

DRUGS (6)
  1. ATAZANAVIR SULFATE [Suspect]
  2. RITONAVIR [Concomitant]
  3. LAMIVUDINE [Concomitant]
  4. TENOFOVIR DISOPROXIL FUMARATE [Concomitant]
  5. GABAPENTIN [Concomitant]
  6. RANITIDINE [Concomitant]

REACTIONS (1)
  - NEPHROLITHIASIS [None]
